FAERS Safety Report 10597747 (Version 1)
Quarter: 2014Q4

REPORT INFORMATION
  Report Type: Spontaneous
  Country: US (occurrence: None)
  Receive Date: 20141030
  Receipt Date: 20141030
  Transmission Date: 20150529
  Serious: Yes (Other)
  Sender: FDA-Public Use
  Company Number: PHEH2014US001316

PATIENT
  Age: 6 Year
  Sex: Female

DRUGS (3)
  1. KEPPRA [Concomitant]
     Active Substance: LEVETIRACETAM
  2. TRILEPTAL [Suspect]
     Active Substance: OXCARBAZEPINE
     Indication: SEIZURE
     Dosage: 16 ML, DAILY (5 ML AT 7:30AM, 5ML AT 1PM AND 6 ML AT 7:30PM), ORAL
     Route: 048
     Dates: start: 20121031
  3. ZENEGRA (SILDENAFIL CITRATE) [Concomitant]

REACTIONS (1)
  - Seizure [None]
